FAERS Safety Report 6007450-0 (Version None)
Quarter: 2008Q4

REPORT INFORMATION
  Report Type: 
  Country: None (occurrence: None)
  Receive Date: 20081217
  Receipt Date: 20080421
  Transmission Date: 20090506
  Serious: No
  Sender: FDA-Public Use
  Company Number: US-ASTRAZENECA-2008UW08131

PATIENT
  Age: 78 Year
  Sex: Male

DRUGS (5)
  1. CRESTOR [Suspect]
     Route: 048
     Dates: start: 20080304
  2. ASPIRIN [Concomitant]
     Route: 048
  3. LISINOPRIL [Concomitant]
     Route: 048
  4. METOPROLOL TARTRATE [Concomitant]
  5. PRANDIN [Concomitant]

REACTIONS (3)
  - CONTUSION [None]
  - MYALGIA [None]
  - RASH PRURITIC [None]
